FAERS Safety Report 8154990-4 (Version None)
Quarter: 2012Q1

REPORT INFORMATION
  Report Type: 
  Country: None (occurrence: None)
  Receive Date: 20120221
  Receipt Date: 20120217
  Transmission Date: 20120608
  Serious: Yes (Death, Other)
  Sender: FDA-Public Use
  Company Number: PHHY2011GR105538

PATIENT
  Age: 83 Year
  Sex: Male

DRUGS (1)
  1. EXJADE [Suspect]
     Indication: ACUTE MYELOID LEUKAEMIA

REACTIONS (8)
  - VENOUS INSUFFICIENCY [None]
  - URTICARIA [None]
  - ANAPHYLACTIC REACTION [None]
  - NEOPLASM MALIGNANT [None]
  - PYREXIA [None]
  - RASH [None]
  - HAEMATOCHEZIA [None]
  - ACUTE MYELOID LEUKAEMIA [None]
